FAERS Safety Report 12549398 (Version 2)
Quarter: 2016Q4

REPORT INFORMATION
  Report Type: Spontaneous
  Country: IT (occurrence: IT)
  Receive Date: 20160712
  Receipt Date: 20161118
  Transmission Date: 20170207
  Serious: Yes (Other)
  Sender: FDA-Public Use
  Company Number: IT-009507513-1607ITA003392

PATIENT
  Age: 59 Year
  Sex: Female
  Weight: 70 kg

DRUGS (2)
  1. RIBAVIRIN. [Suspect]
     Active Substance: RIBAVIRIN
     Indication: HEPATITIS C
     Dosage: 5 DOSE UNITS, DAILY
     Route: 048
     Dates: start: 20151009, end: 20160324
  2. SOVALDI [Suspect]
     Active Substance: SOFOSBUVIR
     Indication: HEPATITIS C
     Dosage: 1 DOSE UNIT, DAILY
     Route: 048
     Dates: start: 20151009, end: 20160324

REACTIONS (1)
  - Hepatitis C RNA increased [Unknown]

NARRATIVE: CASE EVENT DATE: 20160614
